FAERS Safety Report 4603258-9 (Version None)
Quarter: 2005Q2

REPORT INFORMATION
  Report Type: 
  Country: None (occurrence: None)
  Receive Date: 20050223
  Receipt Date: 20040513
  Transmission Date: 20051028
  Serious: Yes (Other)
  Sender: FDA-Public Use
  Company Number: PHEH2004US05321

PATIENT
  Age: 84 Year
  Sex: Female

DRUGS (1)
  1. DIOVAN [Suspect]
     Dosage: ORAL
     Route: 048
     Dates: end: 20040101

REACTIONS (3)
  - HEADACHE [None]
  - LOSS OF CONSCIOUSNESS [None]
  - VOMITING [None]
